FAERS Safety Report 25003742 (Version 2)
Quarter: 2025Q2

REPORT INFORMATION
  Report Type: Spontaneous
  Country: US (occurrence: US)
  Receive Date: 20250224
  Receipt Date: 20250408
  Transmission Date: 20250716
  Serious: Yes (Other)
  Sender: SANOFI AVENTIS
  Company Number: US-SA-2025SA054806

PATIENT
  Age: 21 Year
  Sex: Female

DRUGS (3)
  1. DUPIXENT [Suspect]
     Active Substance: DUPILUMAB
     Indication: Asthma
     Route: 058
     Dates: start: 202210, end: 202210
  2. DUPIXENT [Suspect]
     Active Substance: DUPILUMAB
     Dosage: 300 MG, QOW
     Route: 058
     Dates: end: 202411
  3. DUPIXENT [Suspect]
     Active Substance: DUPILUMAB
     Dosage: 300 MG, QOW
     Route: 058
     Dates: start: 20250116

REACTIONS (6)
  - Pneumonia [Unknown]
  - Bronchitis [Unknown]
  - Influenza [Unknown]
  - Upper respiratory tract infection [Unknown]
  - Urticaria [Unknown]
  - Asthma [Unknown]

NARRATIVE: CASE EVENT DATE: 20241101
